FAERS Safety Report 19573184 (Version 1)
Quarter: 2021Q3

REPORT INFORMATION
  Report Type: Spontaneous
  Country: US (occurrence: US)
  Receive Date: 20210716
  Receipt Date: 20210716
  Transmission Date: 20211014
  Serious: Yes (Other)
  Sender: FDA-Public Use
  Company Number: US-BAXTER-2021BAX020435

PATIENT
  Age: 48 Year
  Sex: Male

DRUGS (1)
  1. DIANEAL LOW CALCIUM PERITONEAL DIALYSIS SOLUTION WITH DEXTROSE [Suspect]
     Active Substance: CALCIUM CHLORIDE\DEXTROSE\MAGNESIUM CHLORIDE\SODIUM CHLORIDE\SODIUM LACTATE
     Indication: PERITONEAL DIALYSIS
     Route: 033
     Dates: start: 202009

REACTIONS (5)
  - Peritoneal dialysis complication [Unknown]
  - Product contamination microbial [Unknown]
  - Poor quality product administered [Unknown]
  - Peritonitis bacterial [Recovered/Resolved]
  - Product dispensing error [Unknown]

NARRATIVE: CASE EVENT DATE: 20210426
